FAERS Safety Report 8022840-2 (Version None)
Quarter: 2012Q1

REPORT INFORMATION
  Report Type: 
  Country: None (occurrence: None)
  Receive Date: 20120104
  Receipt Date: 20111226
  Transmission Date: 20120608
  Serious: Yes (Death)
  Sender: FDA-Public Use
  Company Number: JP-ROCHE-1026404

PATIENT
  Sex: Female
  Weight: 57 kg

DRUGS (8)
  1. AVASTIN [Suspect]
     Indication: COLON CANCER RECURRENT
     Route: 041
     Dates: start: 20111104, end: 20111118
  2. ISOVORIN [Concomitant]
     Indication: COLON CANCER RECURRENT
     Dosage: DOSAGE IS UNCERTAIN.
     Route: 041
  3. OXALIPLATIN [Concomitant]
     Indication: COLON CANCER RECURRENT
     Route: 041
     Dates: start: 20111104, end: 20111118
  4. DECADRON [Concomitant]
     Route: 048
     Dates: start: 20111105, end: 20111107
  5. LOXONIN [Concomitant]
     Indication: PAIN MANAGEMENT
     Route: 048
     Dates: start: 20110909
  6. FLUOROURACIL [Concomitant]
     Indication: COLON CANCER RECURRENT
     Route: 041
     Dates: start: 20111104, end: 20111120
  7. DECADRON [Concomitant]
     Route: 041
     Dates: start: 20111104, end: 20111118
  8. DECADRON [Concomitant]
     Route: 048
     Dates: start: 20111117, end: 20111121

REACTIONS (3)
  - MULTI-ORGAN FAILURE [None]
  - SHOCK [None]
  - INTESTINAL PERFORATION [None]
